FAERS Safety Report 7549224-5 (Version None)
Quarter: 2011Q2

REPORT INFORMATION
  Report Type: 
  Country: None (occurrence: None)
  Receive Date: 20110615
  Receipt Date: 20110601
  Transmission Date: 20111010
  Serious: Yes (Other)
  Sender: FDA-Public Use
  Company Number: PHHY2011CA49555

PATIENT
  Sex: Male

DRUGS (2)
  1. SANDOSTATIN LAR [Suspect]
     Indication: METASTATIC CARCINOID TUMOUR
     Dosage: 60 MG, EVERY 2 WEEKS
     Route: 030
     Dates: start: 20041124
  2. AFINITOR [Suspect]
     Dosage: 5 MG, EVERY DAY
     Route: 048
     Dates: start: 20110518, end: 20110525

REACTIONS (6)
  - STOMATITIS [None]
  - DYSGEUSIA [None]
  - FATIGUE [None]
  - CHEILITIS [None]
  - ASTHENIA [None]
  - DECREASED APPETITE [None]
